FAERS Safety Report 7571869-7 (Version None)
Quarter: 2011Q2

REPORT INFORMATION
  Report Type: 
  Country: None (occurrence: None)
  Receive Date: 20110624
  Receipt Date: 20100519
  Transmission Date: 20111010
  Serious: No
  Sender: FDA-Public Use
  Company Number: A0860413A

PATIENT
  Age: 58 Year
  Sex: Female

DRUGS (5)
  1. SINGULAIR [Concomitant]
  2. VERAMYST [Suspect]
     Dosage: 2SPR TWICE PER DAY
     Route: 045
  3. ASTELIN [Concomitant]
  4. ADVAIR DISKUS 100/50 [Concomitant]
  5. ATROVENT [Concomitant]

REACTIONS (2)
  - PRODUCT QUALITY ISSUE [None]
  - DRUG INEFFECTIVE [None]
